FAERS Safety Report 7134631-5 (Version None)
Quarter: 2010Q4

REPORT INFORMATION
  Report Type: 
  Country: None (occurrence: None)
  Receive Date: 20101203
  Receipt Date: 20101124
  Transmission Date: 20110411
  Serious: Yes (Hospitalization)
  Sender: FDA-Public Use
  Company Number: PHHY2010JP51773

PATIENT
  Sex: Female
  Weight: 50 kg

DRUGS (5)
  1. ALISKIREN/AMOLODIPINE BESYLATE/HYDROCHLOROTHIAZIDE [Suspect]
     Dosage: 150 MG, QD
     Route: 048
     Dates: start: 20100424, end: 20100429
  2. LIPITOR [Concomitant]
     Dosage: UNK
     Route: 048
     Dates: start: 20051221
  3. LASIX [Concomitant]
     Dosage: UNK
     Route: 048
     Dates: start: 20051221
  4. DIART [Concomitant]
     Dosage: UNK
     Route: 048
     Dates: start: 20051221
  5. KIPRES [Concomitant]
     Dosage: UNK
     Route: 048
     Dates: start: 20100323

REACTIONS (1)
  - CARDIAC FAILURE [None]
